FAERS Safety Report 8921194 (Version 2)
Quarter: 2013Q1

REPORT INFORMATION
  Report Type: Spontaneous
  Country: DE (occurrence: DE)
  Receive Date: 20121123
  Receipt Date: 20130110
  Transmission Date: 20140127
  Serious: Yes (Hospitalization, Other)
  Sender: FDA-Public Use
  Company Number: PHHY2012DE104369

PATIENT
  Sex: Female
  Weight: 81 kg

DRUGS (3)
  1. AFINITOR [Suspect]
     Indication: BREAST CANCER
     Dosage: 10 MG/DAY
     Route: 048
     Dates: start: 20120813, end: 20121003
  2. VOLTAREN RESINAT [Concomitant]
     Indication: PAIN
     Dosage: 75 MG, BID
     Route: 048
     Dates: start: 201006, end: 20121016
  3. EXEMESTAN [Concomitant]
     Indication: NEOPLASM MALIGNANT
     Dosage: 25 MG/DAY
     Route: 048
     Dates: start: 20120813, end: 20121003

REACTIONS (5)
  - Pneumonia [Recovering/Resolving]
  - Pneumonitis [Recovering/Resolving]
  - Paraesthesia [Recovering/Resolving]
  - Pain in extremity [Recovering/Resolving]
  - Lung disorder [Unknown]
